FAERS Safety Report 10236906 (Version 2)
Quarter: 2014Q2

REPORT INFORMATION
  Report Type: Spontaneous
  Country: PT (occurrence: PT)
  Receive Date: 20140613
  Receipt Date: 20140625
  Transmission Date: 20141212
  Serious: Yes (Other)
  Sender: FDA-Public Use
  Company Number: PT-BAXTER-2014BAX030163

PATIENT
  Age: 55 Year
  Sex: Male

DRUGS (9)
  1. ENDOXAN [Suspect]
     Indication: TESTIS CANCER
     Route: 065
  2. ENDOXAN [Suspect]
     Indication: NEUROENDOCRINE CARCINOMA
  3. BLEOMYCIN [Suspect]
     Indication: NEUROENDOCRINE CARCINOMA
     Route: 065
  4. BLEOMYCIN [Suspect]
     Indication: TESTIS CANCER
  5. ETOPOSIDE [Suspect]
     Indication: NEUROENDOCRINE CARCINOMA
     Route: 065
  6. ETOPOSIDE [Suspect]
     Indication: TESTIS CANCER
  7. CISPLATIN [Suspect]
     Indication: NEUROENDOCRINE CARCINOMA
     Route: 065
  8. CISPLATIN [Suspect]
     Indication: TESTIS CANCER
  9. IRINOTECAN [Suspect]
     Indication: PRODUCT USED FOR UNKNOWN INDICATION
     Route: 065

REACTIONS (2)
  - Therapeutic response decreased [Unknown]
  - Metastases to retroperitoneum [Unknown]
